FAERS Safety Report 4700759-X (Version None)
Quarter: 2005Q2

REPORT INFORMATION
  Report Type: 
  Country: None (occurrence: None)
  Receive Date: 20050627
  Receipt Date: 20050614
  Transmission Date: 20051028
  Serious: Yes (Hospitalization)
  Sender: FDA-Public Use
  Company Number: 215328

PATIENT
  Age: 60 Year
  Sex: 0

DRUGS (4)
  1. HERCEPTIN [Suspect]
     Indication: BREAST CANCER
     Dosage: 4 MG/KG, INTRAVENOUS
     Route: 042
     Dates: start: 20050429
  2. TAXOL [Suspect]
     Indication: BREAST CANCER
     Dosage: 162 MG, 1/WEEK, INTRAVENOUS
     Route: 042
     Dates: start: 20050429, end: 20050513
  3. LANSOPRAZOLE [Concomitant]
  4. FENTANYL (FENTANYL CITRATE) [Concomitant]

REACTIONS (7)
  - ABDOMINAL PAIN UPPER [None]
  - BLOOD CALCIUM DECREASED [None]
  - CONSTIPATION [None]
  - DEHYDRATION [None]
  - NAUSEA [None]
  - OESOPHAGITIS [None]
  - VOMITING [None]
